FAERS Safety Report 15814679 (Version 4)
Quarter: 2019Q3

REPORT INFORMATION
  Report Type: Spontaneous
  Country: US (occurrence: US)
  Receive Date: 20190111
  Receipt Date: 20190708
  Transmission Date: 20191004
  Serious: Yes (Hospitalization)
  Sender: FDA-Public Use
  Company Number: US-ACTELION-A-NJ2019-184688

PATIENT
  Sex: Female
  Weight: 47.62 kg

DRUGS (5)
  1. VELETRI [Suspect]
     Active Substance: EPOPROSTENOL
     Indication: PULMONARY ARTERIAL HYPERTENSION
     Dosage: 28.7 NG/KG, PER MIN
     Route: 042
  2. VELETRI [Suspect]
     Active Substance: EPOPROSTENOL
     Dosage: 30 NG/KG, PER MIN
     Route: 042
  3. ADEMPAS [Suspect]
     Active Substance: RIOCIGUAT
     Indication: PRODUCT USED FOR UNKNOWN INDICATION
     Dosage: UNK
     Route: 065
     Dates: start: 20190620
  4. TADALAFIL. [Concomitant]
     Active Substance: TADALAFIL
  5. LETAIRIS [Concomitant]
     Active Substance: AMBRISENTAN

REACTIONS (15)
  - Erythema [Not Recovered/Not Resolved]
  - Pneumonia [Unknown]
  - Urticaria [Recovering/Resolving]
  - Heart rate increased [Recovering/Resolving]
  - Headache [Unknown]
  - Lung infection [Unknown]
  - Pain in jaw [Unknown]
  - Dental discomfort [Recovering/Resolving]
  - Fatigue [Unknown]
  - Nasal congestion [Unknown]
  - Sinusitis [Unknown]
  - Periorbital swelling [Unknown]
  - Ear discomfort [Recovering/Resolving]
  - Contusion [Unknown]
  - Skin discolouration [Unknown]
